FAERS Safety Report 5812889-X (Version None)
Quarter: 2008Q3

REPORT INFORMATION
  Report Type: 
  Country: None (occurrence: None)
  Receive Date: 20080717
  Receipt Date: 20080709
  Transmission Date: 20090109
  Serious: Yes (Other)
  Sender: FDA-Public Use
  Company Number: PHHY2008FI10538

PATIENT
  Sex: Male

DRUGS (10)
  1. EXELON [Suspect]
     Indication: DEMENTIA
     Dosage: 6 MG
  2. EXELON [Suspect]
     Dosage: 4.5 MG
  3. EXELON [Suspect]
     Dosage: 3 MG
  4. EXELON [Suspect]
  5. SABRILEX [Suspect]
  6. MEMANTINE HCL [Suspect]
  7. MADOPAR [Suspect]
     Dosage: 100MG/25MG THREE TIMES A DAY
  8. MADOPAR [Suspect]
     Dosage: TWO DOSES
  9. SINEMET [Concomitant]
     Indication: PARKINSON'S DISEASE
     Dosage: 6 TIMES PER A DAY
  10. EYE DROPS [Concomitant]
     Indication: EYE DISORDER

REACTIONS (15)
  - AFFECTIVE DISORDER [None]
  - ANOREXIA [None]
  - BALANCE DISORDER [None]
  - DRUG INTERACTION [None]
  - DRY MOUTH [None]
  - DYSPHAGIA [None]
  - EYE DISORDER [None]
  - FATIGUE [None]
  - GENERAL PHYSICAL HEALTH DETERIORATION [None]
  - HALLUCINATION [None]
  - HYPOKINESIA [None]
  - HYPOTENSION [None]
  - MUSCULOSKELETAL STIFFNESS [None]
  - PARKINSON'S DISEASE [None]
  - SKIN DISORDER [None]
